FAERS Safety Report 13668729 (Version 3)
Quarter: 2017Q3

REPORT INFORMATION
  Report Type: Spontaneous
  Country: US (occurrence: US)
  Receive Date: 20170620
  Receipt Date: 20170802
  Transmission Date: 20171127
  Serious: No
  Sender: FDA-Public Use
  Company Number: US-ASTRAZENECA-2017SE62669

PATIENT
  Age: 851 Month
  Sex: Male

DRUGS (2)
  1. PROAIR HFA [Concomitant]
     Active Substance: ALBUTEROL SULFATE
  2. SYMBICORT [Suspect]
     Active Substance: BUDESONIDE\FORMOTEROL FUMARATE DIHYDRATE
     Indication: CHRONIC OBSTRUCTIVE PULMONARY DISEASE
     Dosage: 160-4.5 MCG, TWO  PUFFS TWICE A DAY
     Route: 055
     Dates: start: 2016

REACTIONS (5)
  - Asthma [Unknown]
  - Circumstance or information capable of leading to medication error [Unknown]
  - Dyspnoea [Recovered/Resolved]
  - Off label use of device [Unknown]
  - Product quality issue [Unknown]

NARRATIVE: CASE EVENT DATE: 201706
